FAERS Safety Report 4686865-7 (Version None)
Quarter: 2005Q2

REPORT INFORMATION
  Report Type: 
  Country: None (occurrence: None)
  Receive Date: 20050609
  Receipt Date: 20050303
  Transmission Date: 20051028
  Serious: Yes (Hospitalization, Disabling)
  Sender: FDA-Public Use
  Company Number: US-MERCK-0503USA00847

PATIENT
  Age: 76 Year
  Sex: Male

DRUGS (11)
  1. VIOXX [Suspect]
     Indication: MUSCLE SPASMS
     Route: 048
     Dates: start: 20010101, end: 20040930
  2. NITROGLYCERIN [Concomitant]
     Route: 065
  3. ZOCOR [Concomitant]
     Route: 048
     Dates: start: 19990102
  4. PLAVIX [Concomitant]
     Route: 048
  5. PRINIVIL [Concomitant]
     Route: 048
     Dates: start: 20031119
  6. AMITRIL [Concomitant]
     Route: 065
     Dates: start: 19990101
  7. PENTOXIFYLLINE [Concomitant]
     Route: 048
  8. METOCLOPRAMIDE [Concomitant]
     Route: 048
  9. METOCLOPRAMIDE [Concomitant]
     Route: 048
  10. BEXTRA [Concomitant]
     Route: 048
  11. TIZANIDINE HYDROCHLORIDE [Concomitant]
     Route: 048

REACTIONS (13)
  - ANOREXIA [None]
  - CHRONIC OBSTRUCTIVE PULMONARY DISEASE [None]
  - CORONARY ARTERY DISEASE [None]
  - COUGH [None]
  - DEPRESSION [None]
  - EMOTIONAL DISTRESS [None]
  - EXCORIATION [None]
  - HEART RATE INCREASED [None]
  - MEMORY IMPAIRMENT [None]
  - OEDEMA PERIPHERAL [None]
  - RENAL FAILURE CHRONIC [None]
  - TRANSIENT ISCHAEMIC ATTACK [None]
  - VENTRICULAR TACHYCARDIA [None]
